FAERS Safety Report 25508082 (Version 1)
Quarter: 2025Q3

REPORT INFORMATION
  Report Type: Spontaneous
  Country: CN (occurrence: CN)
  Receive Date: 20250703
  Receipt Date: 20250703
  Transmission Date: 20251021
  Serious: Yes (Hospitalization)
  Sender: BEIGENE
  Company Number: CN-BEIGENE-BGN-2025-010362

PATIENT
  Age: 64 Year
  Weight: 56 kg

DRUGS (8)
  1. TISLELIZUMAB [Suspect]
     Active Substance: TISLELIZUMAB
     Indication: Rectal cancer
     Dosage: 200 MILLIGRAM, Q3WK
  2. TISLELIZUMAB [Suspect]
     Active Substance: TISLELIZUMAB
     Dosage: 200 MILLIGRAM, Q3WK
     Route: 041
  3. TISLELIZUMAB [Suspect]
     Active Substance: TISLELIZUMAB
     Dosage: 200 MILLIGRAM, Q3WK
     Route: 041
  4. TISLELIZUMAB [Suspect]
     Active Substance: TISLELIZUMAB
     Dosage: 200 MILLIGRAM, Q3WK
  5. FRUQUINTINIB [Concomitant]
     Active Substance: FRUQUINTINIB
     Indication: Rectal cancer
     Dosage: 3 MILLIGRAM, QD
  6. FRUQUINTINIB [Concomitant]
     Active Substance: FRUQUINTINIB
     Dosage: 3 MILLIGRAM, QD
     Route: 048
  7. FRUQUINTINIB [Concomitant]
     Active Substance: FRUQUINTINIB
     Dosage: 3 MILLIGRAM, QD
     Route: 048
  8. FRUQUINTINIB [Concomitant]
     Active Substance: FRUQUINTINIB
     Dosage: 3 MILLIGRAM, QD

REACTIONS (1)
  - Conjunctivitis [Recovered/Resolved]
